FAERS Safety Report 8894462 (Version 1)
Quarter: 2012Q4

REPORT INFORMATION
  Report Type: 
  Country: US (occurrence: US)
  Receive Date: 20121108
  Receipt Date: 20121108
  Transmission Date: 20130627
  Serious: Yes (Life-Threatening, Hospitalization, Other)
  Sender: FDA-Public Use
  Company Number: US-BAYER-2012-114944

PATIENT
  Age: 20 Year
  Sex: Female

DRUGS (2)
  1. YAZ [Suspect]
     Indication: ACNE
     Dosage: UNK
     Route: 048
     Dates: start: 2006
  2. YAZ [Suspect]
     Indication: CONTRACEPTION

REACTIONS (7)
  - Complication of delivery [None]
  - Coagulopathy [None]
  - Bundle branch block left [None]
  - Dizziness [None]
  - Hypoaesthesia [None]
  - Heart rate irregular [None]
  - Loss of consciousness [None]
